FAERS Safety Report 7917599-0 (Version None)
Quarter: 2011Q4

REPORT INFORMATION
  Report Type: 
  Country: None (occurrence: None)
  Receive Date: 20111116
  Receipt Date: 20111104
  Transmission Date: 20120403
  Serious: Yes (Hospitalization, Other)
  Sender: FDA-Public Use
  Company Number: US-BAYER-2011-052322

PATIENT
  Age: 40 Year
  Sex: Female

DRUGS (22)
  1. XOPENEX [Concomitant]
     Indication: ASTHMA
     Dosage: UNK
     Route: 055
     Dates: start: 20070101
  2. DIAZEPAM [Concomitant]
     Indication: MUSCLE SPASMS
  3. ULTRAM [Concomitant]
     Indication: PAIN
     Dosage: UNK
     Route: 048
     Dates: start: 20090319
  4. CYANOCOBALAMIN [Concomitant]
     Dosage: 1000 MCG/ML, UNK
     Dates: start: 20090603
  5. XYZAL [Concomitant]
     Indication: HYPERSENSITIVITY
     Dosage: UNK
     Route: 048
     Dates: start: 20080101
  6. YAZ [Suspect]
     Indication: PREMENSTRUAL SYNDROME
  7. PROTONIX [Concomitant]
     Indication: GASTROOESOPHAGEAL REFLUX DISEASE
     Dosage: UNK
     Route: 048
     Dates: start: 20060101
  8. FISH OIL [Concomitant]
     Indication: CARDIAC DISORDER
  9. ADVAIR DISKUS 100/50 [Concomitant]
     Indication: ASTHMA
     Dosage: UNK
     Route: 048
     Dates: start: 20080101
  10. FLONASE [Concomitant]
     Indication: HYPERSENSITIVITY
     Dosage: UNK
     Route: 045
     Dates: start: 20040101
  11. DIAZEPAM [Concomitant]
     Indication: ANXIETY
     Dosage: UNK
     Route: 048
     Dates: start: 20070101
  12. HYDROCHLOROTHIAZIDE [Concomitant]
     Indication: HYPERTENSION
     Dosage: UNK
     Route: 048
     Dates: start: 20090515
  13. CLINDAMYCIN [Concomitant]
     Dosage: 1 %, UNK
     Route: 061
     Dates: start: 20090603
  14. FISH OIL [Concomitant]
     Indication: ARTHRALGIA
     Dosage: UNK
     Dates: start: 20070101
  15. SYNTHROID [Concomitant]
     Indication: THYROID DISORDER
     Dosage: UNK
     Route: 048
     Dates: start: 20080101
  16. PREDNISONE [Concomitant]
     Dosage: 20 MG, UNK
     Route: 048
     Dates: start: 20090603
  17. YAZ [Suspect]
     Indication: CONTRACEPTION
     Dosage: UNK
     Dates: start: 20071201, end: 20090606
  18. FLONASE [Concomitant]
     Indication: ASTHMA
  19. SINGULAIR [Concomitant]
     Indication: ASTHMA
     Dosage: UNK
     Route: 048
     Dates: start: 20080101, end: 20090101
  20. LYRICA [Concomitant]
     Indication: FIBROMYALGIA
     Dosage: UNK
     Route: 048
     Dates: start: 20080101
  21. ZANTAC [Concomitant]
     Indication: GASTROOESOPHAGEAL REFLUX DISEASE
     Dosage: UNK
     Route: 048
     Dates: start: 20040101
  22. ATENOLOL [Concomitant]
     Indication: HYPERTENSION
     Dosage: UNK
     Route: 048
     Dates: start: 20080101, end: 20090101

REACTIONS (9)
  - PAIN [None]
  - ANXIETY [None]
  - CARDIAC ENZYMES INCREASED [None]
  - FATIGUE [None]
  - EMOTIONAL DISTRESS [None]
  - PULMONARY EMBOLISM [None]
  - LUNG DISORDER [None]
  - INJURY [None]
  - RIGHT VENTRICULAR FAILURE [None]
